FAERS Safety Report 20102999 (Version 1)
Quarter: 2021Q4

REPORT INFORMATION
  Report Type: Spontaneous
  Country: US (occurrence: None)
  Receive Date: 20211122
  Receipt Date: 20211122
  Transmission Date: 20220303
  Serious: No
  Sender: FDA-Public Use
  Company Number: None

PATIENT

DRUGS (5)
  1. BIKTARVY [Suspect]
     Active Substance: BICTEGRAVIR SODIUM\EMTRICITABINE\TENOFOVIR ALAFENAMIDE FUMARATE
  2. XTANDI [Suspect]
     Active Substance: ENZALUTAMIDE
     Route: 048
  3. DEVICE [Suspect]
     Active Substance: DEVICE
  4. DEVICE [Suspect]
     Active Substance: DEVICE
  5. DEVICE [Suspect]
     Active Substance: DEVICE

REACTIONS (5)
  - Contraindicated product prescribed [None]
  - Product communication issue [None]
  - Product preparation error [None]
  - Labelled drug-drug interaction medication error [None]
  - Product monitoring error [None]
